FAERS Safety Report 8285197-8 (Version None)
Quarter: 2012Q2

REPORT INFORMATION
  Report Type: 
  Country: None (occurrence: None)
  Receive Date: 20120413
  Receipt Date: 20110919
  Transmission Date: 20120825
  Serious: No
  Sender: FDA-Public Use
  Company Number: US-ASTRAZENECA-2011SE35429

PATIENT
  Age: 55 Year
  Sex: Female

DRUGS (11)
  1. LOVAZA [Concomitant]
  2. WELLBUTRIN SR [Concomitant]
  3. BENICAR HCT [Concomitant]
  4. VICTOZA [Concomitant]
  5. TRICOR [Concomitant]
  6. ASPIRIN [Concomitant]
  7. VESICARE [Concomitant]
  8. BUSPIRONE HCL [Concomitant]
  9. DULCOLAX [Concomitant]
  10. MELOXICAM [Concomitant]
  11. NEXIUM [Suspect]
     Route: 048

REACTIONS (3)
  - MEMORY IMPAIRMENT [None]
  - BALANCE DISORDER [None]
  - DIZZINESS [None]
